FAERS Safety Report 8067813-9 (Version None)
Quarter: 2012Q1

REPORT INFORMATION
  Report Type: 
  Country: None (occurrence: None)
  Receive Date: 20120124
  Receipt Date: 20120110
  Transmission Date: 20120608
  Serious: Yes (Other)
  Sender: FDA-Public Use
  Company Number: GB-WATSON-2012-00381

PATIENT
  Age: 18 Year
  Sex: Female
  Weight: 54 kg

DRUGS (4)
  1. LAMOTRIGINE [Suspect]
     Indication: EPILEPSY
     Dosage: 200 MG, BID
     Route: 048
     Dates: start: 20101101
  2. LORATADINE [Concomitant]
     Indication: SEASONAL ALLERGY
     Dosage: 10 MG, DAILY
     Route: 048
     Dates: start: 20110501
  3. NEXPLANON [Suspect]
     Indication: PRODUCT USED FOR UNKNOWN INDICATION
     Dosage: UNK
     Dates: start: 20110301
  4. DOXYCYCLINE [Concomitant]
     Indication: SINUSITIS
     Route: 048

REACTIONS (2)
  - EPILEPSY [None]
  - DRUG INTERACTION [None]
